FAERS Safety Report 9201386 (Version 2)
Quarter: 2013Q2

REPORT INFORMATION
  Report Type: Spontaneous
  Country: DE (occurrence: DE)
  Receive Date: 20130401
  Receipt Date: 20130415
  Transmission Date: 20140414
  Serious: Yes (Hospitalization)
  Sender: FDA-Public Use
  Company Number: PHHY2013DE030818

PATIENT
  Sex: Male

DRUGS (2)
  1. DAFIRO HCT [Suspect]
     Indication: HYPERTENSION
     Dosage: 1 DF (160MG VALS/ 5MG AMLO/ 12.5MG HCT), QD
     Route: 048
     Dates: start: 20121019, end: 20130320
  2. TERBINAFIN [Concomitant]
     Indication: FUNGAL INFECTION
     Dosage: 1 DF, (250 MG), QD
     Route: 048
     Dates: start: 20120830, end: 20130330

REACTIONS (4)
  - Circulatory collapse [Recovered/Resolved]
  - Convulsion [Unknown]
  - Muscle spasms [Recovered/Resolved]
  - Blood prolactin increased [Unknown]
